FAERS Safety Report 10213227 (Version 3)
Quarter: 2014Q2

REPORT INFORMATION
  Report Type: Report from Study
  Country: AU (occurrence: AU)
  Receive Date: 20140603
  Receipt Date: 20140604
  Transmission Date: 20141212
  Serious: Yes (Other)
  Sender: FDA-Public Use
  Company Number: AU-ROCHE-1348418

PATIENT
  Age: 65 Year
  Sex: Female

DRUGS (4)
  1. ACTEMRA [Suspect]
     Indication: RHEUMATOID ARTHRITIS
     Route: 042
     Dates: start: 20120531
  2. AVAPRO [Concomitant]
     Indication: HYPERTENSION
     Dosage: 150/12.5 MG?START GREATER THAN 20 YRS AGO
     Route: 048
  3. NEXIUM [Concomitant]
     Indication: GASTROOESOPHAGEAL REFLUX DISEASE
     Dosage: START DATE: GREATER THAN 15 YRS AGO
     Route: 048
  4. PREDNISOLONE [Concomitant]
     Indication: RHEUMATOID ARTHRITIS
     Dosage: DOSE:VARIABLE; START:GREATER 20 YEARS AGO
     Route: 048

REACTIONS (5)
  - Arthralgia [Unknown]
  - Arthralgia [Not Recovered/Not Resolved]
  - Fatigue [Not Recovered/Not Resolved]
  - Oral herpes [Recovered/Resolved]
  - No therapeutic response [Unknown]
